FAERS Safety Report 7007719-7 (Version None)
Quarter: 2010Q3

REPORT INFORMATION
  Report Type: 
  Country: None (occurrence: None)
  Receive Date: 20100920
  Receipt Date: 20100908
  Transmission Date: 20110219
  Serious: Yes (Other)
  Sender: FDA-Public Use
  Company Number: DSJ-2010-15978

PATIENT

DRUGS (3)
  1. OLMESARTAN MEDOXOMIL [Suspect]
     Indication: PRODUCT USED FOR UNKNOWN INDICATION
     Dosage: PER ORAL
     Route: 048
  2. MEVALOTIN (PRAVASTATIN SODIUM) (PRAVASTATIN SODIUM) [Suspect]
     Indication: PRODUCT USED FOR UNKNOWN INDICATION
     Dosage: PER ORAL
     Route: 048
  3. NORVASC [Suspect]
     Indication: HYPERTENSION
     Dosage: PER ORAL
     Route: 048

REACTIONS (3)
  - EOSINOPHIL COUNT INCREASED [None]
  - HEPATIC ENZYME INCREASED [None]
  - HEPATIC FUNCTION ABNORMAL [None]
